FAERS Safety Report 18710010 (Version 1)
Quarter: 2021Q1

REPORT INFORMATION
  Report Type: Spontaneous
  Country: US (occurrence: US)
  Receive Date: 20210106
  Receipt Date: 20210106
  Transmission Date: 20210419
  Serious: Yes (Other)
  Sender: FDA-Public Use
  Company Number: US-BAXTER-2020BAX027028

PATIENT
  Age: 56 Year
  Sex: Female

DRUGS (5)
  1. VANCOMYCIN INJECTION, USP [Suspect]
     Active Substance: VANCOMYCIN
     Indication: PRODUCT USED FOR UNKNOWN INDICATION
     Route: 065
  2. CIPROFLOXACIN INJECTION WITH 5% DEXTROSE INJECTION, USP [Suspect]
     Active Substance: CIPROFLOXACIN
     Indication: PRODUCT USED FOR UNKNOWN INDICATION
     Route: 065
  3. DECADRON [Suspect]
     Active Substance: DEXAMETHASONE
     Indication: PRODUCT USED FOR UNKNOWN INDICATION
     Route: 042
  4. FLAGYL [Suspect]
     Active Substance: METRONIDAZOLE\METRONIDAZOLE HYDROCHLORIDE
     Indication: PRODUCT USED FOR UNKNOWN INDICATION
     Route: 042
  5. PREDNISONE. [Suspect]
     Active Substance: PREDNISONE
     Indication: PRODUCT USED FOR UNKNOWN INDICATION
     Route: 065

REACTIONS (25)
  - Suicidal ideation [Unknown]
  - Gastrointestinal disorder [Unknown]
  - Malabsorption [Unknown]
  - Tendonitis [Unknown]
  - Depression [Unknown]
  - Neuropathy peripheral [Unknown]
  - Pain [Recovered/Resolved]
  - Palatal swelling [Recovered/Resolved]
  - Intervertebral disc protrusion [Unknown]
  - Blindness unilateral [Unknown]
  - Tinnitus [Unknown]
  - Palate injury [Recovered/Resolved]
  - Fatigue [Unknown]
  - Limb discomfort [Unknown]
  - Systemic candida [Unknown]
  - Periarthritis [Unknown]
  - Weight decreased [Unknown]
  - Inflammation [Recovered/Resolved]
  - Rotator cuff syndrome [Unknown]
  - Hypoacusis [Unknown]
  - Retinal artery occlusion [Unknown]
  - General physical health deterioration [Unknown]
  - Stress [Unknown]
  - Anxiety [Unknown]
  - Gait disturbance [Unknown]

NARRATIVE: CASE EVENT DATE: 201810
